FAERS Safety Report 16800754 (Version 1)
Quarter: 2019Q3

REPORT INFORMATION
  Report Type: Spontaneous
  Country: US (occurrence: US)
  Receive Date: 20190912
  Receipt Date: 20190912
  Transmission Date: 20191005
  Serious: No
  Sender: FDA-Public Use
  Company Number: US-ASTELLAS-2019US002437

PATIENT
  Sex: Male

DRUGS (1)
  1. XTANDI [Suspect]
     Active Substance: ENZALUTAMIDE
     Indication: PROSTATE CANCER
     Route: 048

REACTIONS (7)
  - Somnolence [Unknown]
  - Constipation [Unknown]
  - Dizziness [Unknown]
  - Underdose [None]
  - Arthralgia [Unknown]
  - Asthenia [Unknown]
  - Diarrhoea [Unknown]
